FAERS Safety Report 16871333 (Version 1)
Quarter: 2019Q4

REPORT INFORMATION
  Report Type: Report from Study
  Country: None (occurrence: BR)
  Receive Date: 20191001
  Receipt Date: 20191001
  Transmission Date: 20200122
  Serious: Yes (Other)
  Sender: FDA-Public Use
  Company Number: BR-ABBVIE-19K-020-2940305-00

PATIENT
  Age: 46 Year
  Sex: Female

DRUGS (1)
  1. HUMIRA [Suspect]
     Active Substance: ADALIMUMAB
     Indication: PRODUCT USED FOR UNKNOWN INDICATION
     Route: 058
     Dates: start: 20171114

REACTIONS (9)
  - Peripheral swelling [Unknown]
  - Vein rupture [Unknown]
  - Anaemia [Unknown]
  - Mass [Unknown]
  - Bone swelling [Unknown]
  - Menopause [Unknown]
  - Pain in extremity [Unknown]
  - Foot deformity [Unknown]
  - Burning sensation [Unknown]

NARRATIVE: CASE EVENT DATE: 20190917
